FAERS Safety Report 5572246-0 (Version None)
Quarter: 2007Q4

REPORT INFORMATION
  Report Type: 
  Country: None (occurrence: None)
  Receive Date: 20071221
  Receipt Date: 20071213
  Transmission Date: 20080405
  Serious: Yes (Other)
  Sender: FDA-Public Use
  Company Number: US-PFIZER INC-2007105361

PATIENT
  Age: 29 Year
  Sex: Male

DRUGS (3)
  1. LYRICA [Suspect]
     Indication: CONVULSION
     Route: 048
     Dates: start: 20070919, end: 20071107
  2. INTAL [Concomitant]
  3. MONTELUKAST SODIUM [Concomitant]
     Route: 048

REACTIONS (2)
  - ACTIVATED PARTIAL THROMBOPLASTIN TIME PROLONGED [None]
  - CONTUSION [None]
